FAERS Safety Report 25012066 (Version 1)
Quarter: 2025Q1

REPORT INFORMATION
  Report Type: Report from Study
  Country: US (occurrence: US)
  Receive Date: 20250226
  Receipt Date: 20250226
  Transmission Date: 20250409
  Serious: Yes (Hospitalization, Other)
  Sender: TAKEDA
  Company Number: US-TAKEDA-2024TUS009234

PATIENT
  Sex: Female

DRUGS (15)
  1. PONATINIB [Suspect]
     Active Substance: PONATINIB
     Indication: Chronic myeloid leukaemia
     Dosage: 45 MILLIGRAM, QD
  2. PONATINIB [Suspect]
     Active Substance: PONATINIB
     Dosage: 30 MILLIGRAM, QD
  3. PONATINIB [Suspect]
     Active Substance: PONATINIB
     Dosage: 30 MILLIGRAM, QD
  4. PONATINIB [Suspect]
     Active Substance: PONATINIB
     Dosage: 15 MILLIGRAM, QD
  5. METOPROLOL SUCCINATE [Concomitant]
     Active Substance: METOPROLOL SUCCINATE
  6. FOLIC ACID [Concomitant]
     Active Substance: FOLIC ACID
  7. ROSUVASTATIN CALCIUM [Concomitant]
     Active Substance: ROSUVASTATIN CALCIUM
  8. METHOTREXATE [Concomitant]
     Active Substance: METHOTREXATE
  9. GABAPENTIN [Concomitant]
     Active Substance: GABAPENTIN
  10. FLAXSEED [Concomitant]
     Active Substance: FLAX SEED
  11. CALCIUM CARBONATE [Concomitant]
     Active Substance: CALCIUM CARBONATE
  12. ASCORBIC ACID\ZINC [Concomitant]
     Active Substance: ASCORBIC ACID\ZINC
  13. NITROGLYCERIN [Concomitant]
     Active Substance: NITROGLYCERIN
  14. ONDANSETRON [Concomitant]
     Active Substance: ONDANSETRON
  15. XARELTO [Concomitant]
     Active Substance: RIVAROXABAN

REACTIONS (4)
  - Atrial fibrillation [Unknown]
  - Pneumonia [Unknown]
  - Leukaemia [Not Recovered/Not Resolved]
  - Illness [Unknown]
